FAERS Safety Report 20992536 (Version 1)
Quarter: 2022Q2

REPORT INFORMATION
  Report Type: Report from Study
  Country: AR (occurrence: AR)
  Receive Date: 20220622
  Receipt Date: 20220622
  Transmission Date: 20220721
  Serious: Yes (Hospitalization, Other)
  Sender: FDA-Public Use
  Company Number: AR-JNJFOC-20220632808

PATIENT
  Age: 6 Year
  Sex: Female
  Weight: 12 kg

DRUGS (1)
  1. ZAVESCA [Suspect]
     Active Substance: MIGLUSTAT
     Indication: Niemann-Pick disease
     Route: 048
     Dates: start: 20180501

REACTIONS (1)
  - Respiratory arrest [Unknown]

NARRATIVE: CASE EVENT DATE: 20220408
